FAERS Safety Report 5706944-2 (Version None)
Quarter: 2008Q2

REPORT INFORMATION
  Report Type: 
  Country: None (occurrence: None)
  Receive Date: 20080415
  Receipt Date: 20080415
  Transmission Date: 20081010
  Serious: Yes (Other)
  Sender: FDA-Public Use
  Company Number: None

PATIENT
  Age: 35 Year
  Sex: Female
  Weight: 108.8633 kg

DRUGS (1)
  1. FENTANYL TRANSDERMAL SYSTEM [Suspect]
     Indication: PAIN
     Dosage: 1 PATCH CHANGE 72 HOURS OTHER
     Route: 050
     Dates: start: 20070101, end: 20080303

REACTIONS (4)
  - DYSPNOEA [None]
  - ELECTROCARDIOGRAM ABNORMAL [None]
  - PAIN [None]
  - PALPITATIONS [None]
